FAERS Safety Report 9177194 (Version 2)
Quarter: 2013Q3

REPORT INFORMATION
  Report Type: Spontaneous
  Country: US (occurrence: None)
  Receive Date: 20120604
  Receipt Date: 20130724
  Transmission Date: 20140515
  Serious: Yes (Disabling)
  Sender: FDA-Public Use
  Company Number: PHEH2012US004202

PATIENT
  Age: 66 Year
  Sex: Female
  Weight: 66 kg

DRUGS (6)
  1. FANAPT [Suspect]
     Indication: SCHIZOAFFECTIVE DISORDER
     Route: 048
     Dates: start: 20100909, end: 20110220
  2. UNSPECIFIED INGREDIENTS [Suspect]
  3. KLONOPIN (CLONAZEPAM) [Concomitant]
  4. LEVOTHYROXINE (LEVOTHYROXINE) [Concomitant]
  5. ZETIA (EZETIMIBE) [Concomitant]
  6. EFEXOR XR (VENLAFAXINE) [Concomitant]

REACTIONS (6)
  - Extrapyramidal disorder [None]
  - Parkinsonism [None]
  - Tremor [None]
  - Masked facies [None]
  - Musculoskeletal stiffness [None]
  - Gait disturbance [None]
